FAERS Safety Report 4578815-9 (Version None)
Quarter: 2005Q1

REPORT INFORMATION
  Report Type: 
  Country: None (occurrence: None)
  Receive Date: 20050209
  Receipt Date: 20050209
  Transmission Date: 20050727
  Serious: Yes (Hospitalization)
  Sender: FDA-Public Use
  Company Number: None

PATIENT
  Age: 42 Year
  Sex: Female
  Weight: 72.5755 kg

DRUGS (5)
  1. ZONEGRAN [Suspect]
     Indication: CONVULSION
     Dosage: TOTAL OF 500 QD
  2. ACIPHEX [Concomitant]
  3. SYNTHROID [Concomitant]
  4. DEPAKOTE [Concomitant]
  5. MULTI-VITAMIN [Concomitant]

REACTIONS (2)
  - NAUSEA [None]
  - NEPHROLITHIASIS [None]
